FAERS Safety Report 17037084 (Version 4)
Quarter: 2019Q4

REPORT INFORMATION
  Report Type: Spontaneous
  Country: US (occurrence: US)
  Receive Date: 20191115
  Receipt Date: 20191218
  Transmission Date: 20200122
  Serious: No
  Sender: FDA-Public Use
  Company Number: US-PFIZER INC-2019491371

PATIENT
  Age: 57 Year
  Sex: Male
  Weight: 96.15 kg

DRUGS (5)
  1. STAXYN [Concomitant]
     Active Substance: VARDENAFIL HYDROCHLORIDE
     Dosage: 10 MG, UNK
     Dates: start: 201507
  2. SILDENAFIL CITRATE. [Suspect]
     Active Substance: SILDENAFIL CITRATE
     Indication: ERECTILE DYSFUNCTION
     Dosage: UNK
  3. CIALIS [Concomitant]
     Active Substance: TADALAFIL
     Dosage: 10 MG, UNK
     Dates: start: 201506
  4. LEVITRA [Concomitant]
     Active Substance: VARDENAFIL HYDROCHLORIDE
     Indication: SEXUAL DYSFUNCTION
     Dosage: 20 MG, UNK
     Dates: start: 201509
  5. LEVITRA [Concomitant]
     Active Substance: VARDENAFIL HYDROCHLORIDE
     Dosage: UNK
     Dates: start: 20191105, end: 20191105

REACTIONS (1)
  - Drug ineffective [Not Recovered/Not Resolved]

NARRATIVE: CASE EVENT DATE: 201502
